FAERS Safety Report 6636279-5 (Version None)
Quarter: 2010Q1

REPORT INFORMATION
  Report Type: 
  Country: None (occurrence: None)
  Receive Date: 20100226
  Receipt Date: 20100205
  Transmission Date: 20100710
  Serious: Yes (Other)
  Sender: FDA-Public Use
  Company Number: 2010-00231

PATIENT
  Age: 25 Year
  Sex: Male
  Weight: 88.4514 kg

DRUGS (2)
  1. ZICAM COLD REMEDY ORAL MIST [Suspect]
     Dosage: QID - 2 DAYS
     Dates: start: 20100203, end: 20100205
  2. MULTIPLE VITAMINS [Concomitant]

REACTIONS (2)
  - AGEUSIA [None]
  - ANOSMIA [None]
